FAERS Safety Report 11716608 (Version 1)
Quarter: 2015Q4

REPORT INFORMATION
  Report Type: Report from Study
  Country: US (occurrence: US)
  Receive Date: 20151109
  Receipt Date: 20151109
  Transmission Date: 20160304
  Serious: No
  Sender: FDA-Public Use
  Company Number: US-CELGENEUS-USA-2015096014

PATIENT

DRUGS (2)
  1. DEXAMETHASONE. [Suspect]
     Active Substance: DEXAMETHASONE
     Indication: NEOPLASM MALIGNANT
     Route: 065
  2. REVLIMID [Suspect]
     Active Substance: LENALIDOMIDE
     Indication: NEOPLASM MALIGNANT
     Route: 048

REACTIONS (9)
  - Depression [Unknown]
  - Unevaluable event [Unknown]
  - Muscle disorder [Unknown]
  - Hyperhidrosis [Unknown]
  - Hypersomnia [Unknown]
  - Quality of life decreased [Unknown]
  - Emotional distress [Unknown]
  - Feeling abnormal [Unknown]
  - Nausea [Unknown]
